FAERS Safety Report 17318245 (Version 1)
Quarter: 2020Q1

REPORT INFORMATION
  Report Type: Spontaneous
  Country: AU (occurrence: AU)
  Receive Date: 20200124
  Receipt Date: 20200124
  Transmission Date: 20200409
  Serious: Yes (Other)
  Sender: FDA-Public Use
  Company Number: AU-GILEAD-2020-0448023

PATIENT
  Age: 45 Year
  Sex: Male

DRUGS (9)
  1. MAGNESIUM [Suspect]
     Active Substance: MAGNESIUM
     Indication: MUSCLE SPASMS
     Route: 065
  2. FE 10 [Suspect]
     Active Substance: IRON
     Indication: PRODUCT USED FOR UNKNOWN INDICATION
     Route: 065
  3. SERTRALINE [Concomitant]
     Active Substance: SERTRALINE HYDROCHLORIDE
  4. MAGNESIUM SILICATE [Suspect]
     Active Substance: MAGNESIUM SILICATE
  5. BIKTARVY [Suspect]
     Active Substance: BICTEGRAVIR SODIUM\EMTRICITABINE\TENOFOVIR ALAFENAMIDE FUMARATE
     Indication: HIV INFECTION
     Dosage: 1 DOSAGE FORM, QHS
     Route: 065
  6. MULTIVITAMIN AND MINERAL SUPPLEMENT [Concomitant]
     Active Substance: MINERALS\VITAMINS
     Indication: PRODUCT USED FOR UNKNOWN INDICATION
     Route: 065
  7. CALCIUM SILICATE [Suspect]
     Active Substance: CALCIUM SILICATE
  8. BIKTARVY [Interacting]
     Active Substance: BICTEGRAVIR SODIUM\EMTRICITABINE\TENOFOVIR ALAFENAMIDE FUMARATE
     Dosage: 1 DOSAGE FORM, QD; ADMINISTERED IN MORNING
     Route: 065
  9. ALUMINUM SILICATE [Interacting]
     Active Substance: ALUMINUM SILICATE
     Indication: PRODUCT USED FOR UNKNOWN INDICATION
     Route: 065

REACTIONS (4)
  - Gonorrhoea [Not Recovered/Not Resolved]
  - Muscle spasms [Unknown]
  - Viral load increased [Recovered/Resolved]
  - Inhibitory drug interaction [Recovered/Resolved]
